FAERS Safety Report 16968934 (Version 3)
Quarter: 2019Q4

REPORT INFORMATION
  Report Type: Report from Study
  Country: US (occurrence: US)
  Receive Date: 20191029
  Receipt Date: 20191219
  Transmission Date: 20200122
  Serious: No
  Sender: FDA-Public Use
  Company Number: US-SAGE-2019SAGE000053

PATIENT

DRUGS (4)
  1. ZULRESSO [Suspect]
     Active Substance: BREXANOLONE
     Indication: PERINATAL DEPRESSION
     Dosage: 100MG/20ML SINGLE-DOSE VIAL
     Route: 042
     Dates: start: 20191002, end: 20191006
  2. KLONOPIN [Concomitant]
     Active Substance: CLONAZEPAM
     Indication: PRODUCT USED FOR UNKNOWN INDICATION
     Route: 065
  3. TRAZODONE HYDROCHLORIDE. [Concomitant]
     Active Substance: TRAZODONE HYDROCHLORIDE
     Indication: INSOMNIA
     Route: 065
  4. ADDERALL [Concomitant]
     Active Substance: AMPHETAMINE ASPARTATE\AMPHETAMINE SULFATE\DEXTROAMPHETAMINE SACCHARATE\DEXTROAMPHETAMINE SULFATE
     Indication: ATTENTION DEFICIT/HYPERACTIVITY DISORDER
     Route: 065

REACTIONS (10)
  - Confusional state [Unknown]
  - Tremor [Unknown]
  - Product administration error [Recovered/Resolved]
  - Mental fatigue [Unknown]
  - Underdose [Recovered/Resolved]
  - Crying [Unknown]
  - Anxiety [Unknown]
  - Influenza [Unknown]
  - Pruritus [Unknown]
  - Panic attack [Unknown]

NARRATIVE: CASE EVENT DATE: 2019
